FAERS Safety Report 14580880 (Version 2)
Quarter: 2018Q2

REPORT INFORMATION
  Report Type: Other
  Country: GB (occurrence: GB)
  Receive Date: 20180228
  Receipt Date: 20180503
  Transmission Date: 20180711
  Serious: Yes (Death, Other)
  Sender: FDA-Public Use
  Company Number: GB-MACLEODS PHARMACEUTICALS US LTD-MAC2018010380

PATIENT

DRUGS (6)
  1. CLOPIDOGREL [Interacting]
     Active Substance: CLOPIDOGREL BISULFATE
     Indication: TRANSIENT ISCHAEMIC ATTACK
  2. RIVAROXABAN [Interacting]
     Active Substance: RIVAROXABAN
     Indication: CEREBRAL AMYLOID ANGIOPATHY
  3. CLOPIDOGREL [Interacting]
     Active Substance: CLOPIDOGREL BISULFATE
     Indication: CEREBRAL AMYLOID ANGIOPATHY
  4. RIVAROXABAN [Interacting]
     Active Substance: RIVAROXABAN
     Indication: ATRIAL FIBRILLATION
     Dosage: UNK
     Route: 065
  5. RIVAROXABAN [Interacting]
     Active Substance: RIVAROXABAN
     Indication: TRANSIENT ISCHAEMIC ATTACK
  6. CLOPIDOGREL [Suspect]
     Active Substance: CLOPIDOGREL BISULFATE
     Indication: ATRIAL FIBRILLATION
     Dosage: UNK
     Route: 065

REACTIONS (3)
  - Labelled drug-drug interaction medication error [Fatal]
  - Cerebral haemorrhage [Fatal]
  - Medication error [Fatal]
